FAERS Safety Report 23422561 (Version 5)
Quarter: 2024Q4

REPORT INFORMATION
  Report Type: Report from Study
  Country: GB (occurrence: GB)
  Receive Date: 20240119
  Receipt Date: 20241218
  Transmission Date: 20250114
  Serious: Yes (Hospitalization, Other)
  Sender: GLAXOSMITHKLINE
  Company Number: GB-GLAXOSMITHKLINE-GB2023EME012145

PATIENT

DRUGS (2)
  1. MEPOLIZUMAB [Suspect]
     Active Substance: MEPOLIZUMAB
     Indication: Asthma
     Dosage: 100 MG
     Dates: start: 202208
  2. MEPOLIZUMAB [Suspect]
     Active Substance: MEPOLIZUMAB
     Indication: Asthma
     Dosage: 100 MG

REACTIONS (13)
  - Kidney infection [Not Recovered/Not Resolved]
  - Renal failure [Unknown]
  - Stent placement [Unknown]
  - Urinary tract infection [Unknown]
  - Pain [Unknown]
  - Nephrostomy [Unknown]
  - Rheumatic disorder [Unknown]
  - Mobility decreased [Unknown]
  - Drain placement [Unknown]
  - Constipation [Unknown]
  - Cholelithiasis [Unknown]
  - Dialysis [Unknown]
  - Inappropriate schedule of product administration [Unknown]

NARRATIVE: CASE EVENT DATE: 20231229
